FAERS Safety Report 7726453-9 (Version None)
Quarter: 2011Q3

REPORT INFORMATION
  Report Type: 
  Country: None (occurrence: None)
  Receive Date: 20110902
  Receipt Date: 20110826
  Transmission Date: 20111222
  Serious: Yes (Death, Life-Threatening, Hospitalization, Other)
  Sender: FDA-Public Use
  Company Number: NL-GENZYME-CLOF-1001615

PATIENT
  Sex: Male
  Weight: 86 kg

DRUGS (9)
  1. EVOLTRA [Suspect]
     Dosage: UNK
     Route: 065
     Dates: start: 20110301
  2. METHYLCELLULOSE [Concomitant]
     Dosage: UNK
     Route: 047
     Dates: start: 20110426, end: 20110511
  3. EVOLTRA [Suspect]
     Dosage: 20 MG, UNK
     Route: 042
     Dates: start: 20110427, end: 20110501
  4. FLUCONAZOLE [Concomitant]
     Dosage: 100 MG, QD
     Route: 042
     Dates: start: 20110508, end: 20110511
  5. METRONIDAZOLE [Concomitant]
     Dosage: 500 MG, TID
     Route: 042
     Dates: start: 20110509, end: 20110511
  6. MEROPENEM [Concomitant]
     Dosage: 1500 MG, TID
     Route: 042
     Dates: start: 20110507, end: 20110511
  7. POTASSIUM CHLORIDE [Concomitant]
     Dosage: UNK
     Route: 042
     Dates: start: 20110510, end: 20110511
  8. CYTARABINE [Suspect]
     Dosage: 4088 MG, UNK
     Route: 042
     Dates: start: 20110427, end: 20110502
  9. AMSACRINE [Suspect]
     Dosage: 245 MG, UNK
     Route: 042
     Dates: start: 20110430, end: 20110502

REACTIONS (2)
  - SEPSIS [None]
  - CEREBRAL HAEMORRHAGE [None]
